FAERS Safety Report 6740662-7 (Version None)
Quarter: 2010Q2

REPORT INFORMATION
  Report Type: 
  Country: None (occurrence: None)
  Receive Date: 20100525
  Receipt Date: 20100518
  Transmission Date: 20101027
  Serious: Yes (Hospitalization, Other)
  Sender: FDA-Public Use
  Company Number: US-BAXTER-2010BH006648

PATIENT
  Age: 40 Year
  Sex: Male
  Weight: 75 kg

DRUGS (25)
  1. DIANEAL [Suspect]
     Indication: PERITONEAL DIALYSIS
     Route: 033
     Dates: start: 20091012, end: 20100308
  2. DIANEAL [Suspect]
     Indication: RENAL FAILURE CHRONIC
     Route: 033
     Dates: start: 20091012, end: 20100308
  3. DIANEAL [Suspect]
     Route: 033
     Dates: start: 20031101, end: 20040301
  4. DIANEAL [Suspect]
     Route: 033
     Dates: start: 20031101, end: 20040301
  5. DIANEAL [Suspect]
     Indication: PERITONEAL DIALYSIS
     Route: 033
     Dates: start: 20091012, end: 20100308
  6. DIANEAL [Suspect]
     Indication: RENAL FAILURE CHRONIC
     Route: 033
     Dates: start: 20091012, end: 20100308
  7. DIANEAL [Suspect]
     Route: 033
     Dates: start: 20031101, end: 20040301
  8. DIANEAL [Suspect]
     Route: 033
     Dates: start: 20031101, end: 20040301
  9. EXTRANEAL [Suspect]
     Indication: PERITONEAL DIALYSIS
     Route: 033
     Dates: start: 20091012, end: 20100308
  10. EXTRANEAL [Suspect]
     Indication: RENAL FAILURE CHRONIC
     Route: 033
     Dates: start: 20091012, end: 20100308
  11. HEPARIN SODIUM [Suspect]
     Indication: ANTICOAGULANT THERAPY
     Route: 042
     Dates: start: 20100224
  12. EPOGEN [Concomitant]
     Indication: DRUG USE FOR UNKNOWN INDICATION
     Route: 058
     Dates: start: 20091202
  13. AMLODIPINE BESYLATE [Concomitant]
     Indication: DRUG USE FOR UNKNOWN INDICATION
     Route: 048
     Dates: start: 20091118
  14. BOOST [Concomitant]
     Indication: DRUG USE FOR UNKNOWN INDICATION
     Route: 048
     Dates: start: 20091028
  15. XANAX [Concomitant]
     Indication: DRUG USE FOR UNKNOWN INDICATION
     Route: 048
     Dates: start: 20090831
  16. VASOTEC [Concomitant]
     Indication: DRUG USE FOR UNKNOWN INDICATION
     Route: 048
     Dates: start: 20090429
  17. SENSIPAR [Concomitant]
     Indication: DRUG USE FOR UNKNOWN INDICATION
     Route: 048
     Dates: start: 20090429
  18. RENAGEL [Concomitant]
     Indication: DRUG USE FOR UNKNOWN INDICATION
     Route: 048
     Dates: start: 20090429
  19. PERCOCET [Concomitant]
     Indication: PAIN
     Route: 048
     Dates: start: 20090429
  20. OXYCONTIN [Concomitant]
     Indication: DRUG USE FOR UNKNOWN INDICATION
     Route: 048
     Dates: start: 20090429
  21. OXYCODONE [Concomitant]
     Indication: PAIN
     Route: 048
     Dates: start: 20090429
  22. FLUOXETINE [Concomitant]
     Indication: DRUG USE FOR UNKNOWN INDICATION
     Route: 048
     Dates: start: 20090429
  23. CLONAZEPAM [Concomitant]
     Indication: DRUG USE FOR UNKNOWN INDICATION
     Route: 048
     Dates: start: 20090429
  24. PROMETHAZINE [Concomitant]
     Indication: NAUSEA
     Route: 042
     Dates: start: 20100215, end: 20100218
  25. HEPARIN [Concomitant]
     Indication: ANTICOAGULANT THERAPY
     Route: 042
     Dates: start: 20100224

REACTIONS (2)
  - HAEMORRHAGE [None]
  - ULTRAFILTRATION FAILURE [None]
